FAERS Safety Report 13347030 (Version 6)
Quarter: 2017Q2

REPORT INFORMATION
  Report Type: Spontaneous
  Country: IT (occurrence: IT)
  Receive Date: 20170317
  Receipt Date: 20170605
  Transmission Date: 20170830
  Serious: Yes (Hospitalization, Other)
  Sender: FDA-Public Use
  Company Number: IT-OTSUKA-2017_005785

PATIENT
  Age: 47 Year
  Sex: Male

DRUGS (12)
  1. LAMOTRIGINE. [Concomitant]
     Active Substance: LAMOTRIGINE
     Indication: DEPRESSION
     Dosage: 100+25 MG, QD
     Route: 065
  2. ASENAPINE [Concomitant]
     Active Substance: ASENAPINE
     Indication: AFFECT LABILITY
     Dosage: UNK
     Route: 065
  3. ESCITALOPRAM [Concomitant]
     Active Substance: ESCITALOPRAM OXALATE
     Indication: DEPRESSION
  4. ABILIFY MAINTENA [Suspect]
     Active Substance: ARIPIPRAZOLE
     Indication: BIPOLAR DISORDER
     Dosage: 400 MG, UNK
     Route: 065
     Dates: start: 2016, end: 2016
  5. QUETIAPINE. [Concomitant]
     Active Substance: QUETIAPINE
     Indication: AFFECT LABILITY
     Dosage: UNK
     Route: 065
  6. LAMOTRIGINE. [Concomitant]
     Active Substance: LAMOTRIGINE
     Indication: BIPOLAR II DISORDER
     Dosage: UNK
     Route: 065
  7. LAMOTRIGINE. [Concomitant]
     Active Substance: LAMOTRIGINE
     Indication: AFFECT LABILITY
     Dosage: 200 MG, BID
     Route: 065
  8. ESCITALOPRAM [Concomitant]
     Active Substance: ESCITALOPRAM OXALATE
     Indication: BIPOLAR II DISORDER
     Dosage: 10 MG, QD
     Route: 065
  9. VORTIOXETINE [Concomitant]
     Active Substance: VORTIOXETINE
     Indication: BIPOLAR II DISORDER
     Dosage: 20 MG, QD
     Route: 065
  10. ABILIFY MAINTENA [Suspect]
     Active Substance: ARIPIPRAZOLE
     Dosage: 200 MG, QD
     Route: 065
     Dates: start: 20161004, end: 20161004
  11. OLANZAPINE. [Concomitant]
     Active Substance: OLANZAPINE
     Indication: AFFECT LABILITY
     Dosage: UNK
     Route: 065
  12. VORTIOXETINE [Concomitant]
     Active Substance: VORTIOXETINE
     Indication: DEPRESSION

REACTIONS (9)
  - Intracranial mass [Unknown]
  - Depression [Unknown]
  - Psychomotor retardation [Unknown]
  - Mood altered [Unknown]
  - Hypersomnia [Unknown]
  - Abulia [Unknown]
  - Asthenia [Unknown]
  - Off label use [Unknown]
  - Drug ineffective [Unknown]

NARRATIVE: CASE EVENT DATE: 2016
